APPROVED DRUG PRODUCT: GLYCOPYRROLATE
Active Ingredient: GLYCOPYRROLATE
Strength: 2MG
Dosage Form/Route: TABLET;ORAL
Application: A040821 | Product #002 | TE Code: AA
Applicant: RISING PHARMA HOLDINGS INC
Approved: Dec 29, 2008 | RLD: No | RS: No | Type: RX